FAERS Safety Report 5416956-4 (Version None)
Quarter: 2007Q3

REPORT INFORMATION
  Report Type: 
  Country: None (occurrence: None)
  Receive Date: 20070816
  Receipt Date: 20070806
  Transmission Date: 20080115
  Serious: Yes (Hospitalization)
  Sender: FDA-Public Use
  Company Number: JP-PFIZER INC-2007065470

PATIENT
  Age: 2 Month
  Sex: Female

DRUGS (2)
  1. PONTAL [Suspect]
     Indication: PYREXIA
     Route: 048
     Dates: start: 20070805, end: 20070805
  2. DRUG, UNSPECIFIED [Concomitant]

REACTIONS (1)
  - HYPOTHERMIA [None]
